FAERS Safety Report 7759523 (Version 2)
Quarter: 2014Q3

REPORT INFORMATION
  Report Type: Report from Study
  Country: DE (occurrence: DE)
  Receive Date: 20110113
  Receipt Date: 20140827
  Transmission Date: 20150326
  Serious: Yes (Hospitalization, Other)
  Sender: FDA-Public Use
  Company Number: DE-MPIJNJ-2011-00034

PATIENT

DRUGS (1)
  1. VELCADE [Suspect]
     Active Substance: BORTEZOMIB
     Indication: PLASMA CELL MYELOMA
     Dosage: 1.3 MG/M2, CYCLIC
     Route: 042
     Dates: start: 20101002, end: 20101122

REACTIONS (2)
  - Pneumonia [Recovered/Resolved]
  - Febrile bone marrow aplasia [Recovered/Resolved]

NARRATIVE: CASE EVENT DATE: 20101231
